FAERS Safety Report 9844290 (Version 1)
Quarter: 2014Q1

REPORT INFORMATION
  Report Type: Spontaneous
  Country: NL (occurrence: NL)
  Receive Date: 20140127
  Receipt Date: 20140127
  Transmission Date: 20141002
  Serious: Yes (Other)
  Sender: FDA-Public Use
  Company Number: NL-ACCORD-021479

PATIENT
  Sex: Male

DRUGS (2)
  1. METOPROLOL [Concomitant]
  2. AMLODIPINE [Suspect]
     Indication: PRODUCT USED FOR UNKNOWN INDICATION

REACTIONS (2)
  - Rash [Unknown]
  - Attention deficit/hyperactivity disorder [Unknown]
